FAERS Safety Report 18029230 (Version 3)
Quarter: 2021Q4

REPORT INFORMATION
  Report Type: Report from Study
  Country: CA (occurrence: CA)
  Receive Date: 20200715
  Receipt Date: 20211019
  Transmission Date: 20220303
  Serious: Yes (Other)
  Sender: FDA-Public Use
  Company Number: CA-JNJFOC-20200715255

PATIENT
  Age: 56 Year
  Sex: Female
  Weight: 127.5 kg

DRUGS (2)
  1. STELARA [Suspect]
     Active Substance: USTEKINUMAB
     Indication: Crohn^s disease
     Route: 058
     Dates: start: 20141203, end: 20200729
  2. STELARA [Suspect]
     Active Substance: USTEKINUMAB
     Dosage: WILL RECEIVE REINDUCTION OF 520 MG IV X 1 THEN 90 MG SC Q 8 WEEKS
     Route: 058
     Dates: end: 202107

REACTIONS (1)
  - Subcutaneous abscess [Unknown]

NARRATIVE: CASE EVENT DATE: 20200707
